FAERS Safety Report 18649554 (Version 1)
Quarter: 2020Q4

REPORT INFORMATION
  Report Type: Spontaneous
  Country: DE (occurrence: DE)
  Receive Date: 20201222
  Receipt Date: 20201222
  Transmission Date: 20210114
  Serious: Yes (Other)
  Sender: FDA-Public Use
  Company Number: DE-US-PROVELL PHARMACEUTICALS LLC-9205708

PATIENT
  Sex: Female

DRUGS (3)
  1. EUTHYROX [Suspect]
     Active Substance: LEVOTHYROXINE SODIUM
     Indication: AUTOIMMUNE THYROIDITIS
     Dosage: NEW FORMULATION
     Dates: start: 2019, end: 2020
  2. EUTHYROX [Suspect]
     Active Substance: LEVOTHYROXINE SODIUM
     Dosage: ONE DAY EUTHYROX OLD FORMULATION 150 UG AND THE OTHER DAY EUTHYROX NEW FORMULATION 125 UG
     Dates: start: 2020, end: 2020
  3. EUTHYROX [Suspect]
     Active Substance: LEVOTHYROXINE SODIUM
     Dosage: UNKNOWN DOSAGE
     Dates: start: 2020

REACTIONS (5)
  - Weight increased [Unknown]
  - Therapeutic response decreased [Unknown]
  - Major depression [Recovering/Resolving]
  - Intentional product misuse [Unknown]
  - Fluid retention [Unknown]

NARRATIVE: CASE EVENT DATE: 2020
